FAERS Safety Report 13661588 (Version 1)
Quarter: 2017Q2

REPORT INFORMATION
  Report Type: Spontaneous
  Country: US (occurrence: US)
  Receive Date: 20170616
  Receipt Date: 20170616
  Transmission Date: 20170830
  Serious: No
  Sender: FDA-Public Use
  Company Number: US-US WORLDMEDS, LLC-USW201608-000564

PATIENT
  Age: 82 Year
  Sex: Male

DRUGS (6)
  1. APOKYN [Suspect]
     Active Substance: APOMORPHINE HYDROCHLORIDE
     Indication: PARKINSON^S DISEASE
     Route: 058
     Dates: start: 20160803
  2. APOKYN [Suspect]
     Active Substance: APOMORPHINE HYDROCHLORIDE
     Route: 058
     Dates: start: 20160817
  3. APOKYN [Suspect]
     Active Substance: APOMORPHINE HYDROCHLORIDE
  4. CARBIDOPA/LEVODOPA ER [Concomitant]
     Active Substance: CARBIDOPA\LEVODOPA
  5. TIGAN [Concomitant]
     Active Substance: TRIMETHOBENZAMIDE HYDROCHLORIDE
     Dates: start: 20160725
  6. SINEMET [Concomitant]
     Active Substance: CARBIDOPA\LEVODOPA

REACTIONS (5)
  - Muscle spasms [Not Recovered/Not Resolved]
  - Haematuria [Recovered/Resolved]
  - Hypertension [Recovered/Resolved]
  - Skin tightness [Recovered/Resolved]
  - Hypokinesia [Recovered/Resolved]

NARRATIVE: CASE EVENT DATE: 20160804
